FAERS Safety Report 24058305 (Version 2)
Quarter: 2024Q4

REPORT INFORMATION
  Report Type: Spontaneous
  Country: AE (occurrence: AE)
  Receive Date: 20240708
  Receipt Date: 20241003
  Transmission Date: 20250115
  Serious: Yes (Hospitalization)
  Sender: BRISTOL MYERS SQUIBB
  Company Number: AE-IPSEN Group, Research and Development-2024-12817

PATIENT
  Age: 56 Year
  Sex: Male

DRUGS (2)
  1. OPDIVO [Suspect]
     Active Substance: NIVOLUMAB
     Indication: Renal cell carcinoma
     Dosage: 480 MG, EVERY 28 DAYS
     Route: 042
  2. CABOMETYX [Suspect]
     Active Substance: CABOZANTINIB S-MALATE
     Indication: Renal cell carcinoma
     Dosage: 40 MG, QD
     Route: 048
     Dates: start: 20230214

REACTIONS (1)
  - Ulcer haemorrhage [Recovering/Resolving]

NARRATIVE: CASE EVENT DATE: 20240601
